FAERS Safety Report 8592131-X (Version None)
Quarter: 2012Q3

REPORT INFORMATION
  Report Type: 
  Country: None (occurrence: None)
  Receive Date: 20120814
  Receipt Date: 20120802
  Transmission Date: 20120928
  Serious: Yes (Other)
  Sender: FDA-Public Use
  Company Number: CR-BAYER-2012-076912

PATIENT
  Age: 30 Year
  Sex: Female
  Weight: 134 kg

DRUGS (3)
  1. YASMIN [Suspect]
     Indication: CONTRACEPTION
     Dosage: 1 DF, QD
     Route: 048
     Dates: start: 20080101, end: 20110201
  2. FEXOFENADINE [Concomitant]
     Indication: ASTHMA
  3. MONTELUKAST [Concomitant]
     Indication: ASTHMA

REACTIONS (5)
  - SINUS TACHYCARDIA [None]
  - PULMONARY EMBOLISM [None]
  - PULMONARY HYPERTENSION [None]
  - CHEST DISCOMFORT [None]
  - DYSPNOEA [None]
